FAERS Safety Report 21507902 (Version 1)
Quarter: 2022Q4

REPORT INFORMATION
  Report Type: Spontaneous
  Country: ES (occurrence: ES)
  Receive Date: 20221026
  Receipt Date: 20221026
  Transmission Date: 20230113
  Serious: Yes (Other)
  Sender: FDA-Public Use
  Company Number: None

PATIENT
  Age: 60 Year
  Sex: Female

DRUGS (2)
  1. FENTANYL [Interacting]
     Active Substance: FENTANYL
     Indication: Product used for unknown indication
     Dosage: FENTANILO (1543A) , DURATION : 11 DAYS
     Route: 065
     Dates: start: 20220728, end: 20220807
  2. ERTAPENEM [Interacting]
     Active Substance: ERTAPENEM
     Indication: Pyelonephritis
     Dosage: ERTAPENEM (2881A) , UNIT DOSE :  1 GRAM  , FREQUENCY TIME : 1 DAY  , DURATION :  16 DAYS
     Dates: start: 20220723, end: 20220807

REACTIONS (2)
  - Encephalopathy [Recovered/Resolved]
  - Drug interaction [Unknown]

NARRATIVE: CASE EVENT DATE: 20220806
